FAERS Safety Report 26115403 (Version 1)
Quarter: 2025Q4

REPORT INFORMATION
  Report Type: Spontaneous
  Country: US (occurrence: US)
  Receive Date: 20251203
  Receipt Date: 20251203
  Transmission Date: 20260118
  Serious: Yes (Hospitalization)
  Sender: LUPIN
  Company Number: US-LUPIN PHARMACEUTICALS INC.-2025-10805

PATIENT
  Age: 22 Month
  Sex: Female

DRUGS (1)
  1. BREXPIPRAZOLE [Suspect]
     Active Substance: BREXPIPRAZOLE
     Indication: Product used for unknown indication
     Dosage: UNK, 27 DOSAGE FORM (1 MG TABLET)

REACTIONS (6)
  - Agitation [Recovered/Resolved]
  - Somnolence [Recovering/Resolving]
  - Tachycardia [Recovering/Resolving]
  - Oromandibular dystonia [Recovering/Resolving]
  - Accidental overdose [Unknown]
  - Accidental exposure to product by child [Unknown]
